FAERS Safety Report 18108779 (Version 1)
Quarter: 2020Q3

REPORT INFORMATION
  Report Type: Spontaneous
  Country: AU (occurrence: AU)
  Receive Date: 20200804
  Receipt Date: 20200804
  Transmission Date: 20201103
  Serious: Yes (Other)
  Sender: FDA-Public Use
  Company Number: AU-ABBVIE-20K-008-3473005-00

PATIENT
  Age: 47 Year
  Sex: Male
  Weight: 180 kg

DRUGS (3)
  1. HUMIRA [Suspect]
     Active Substance: ADALIMUMAB
     Route: 058
     Dates: start: 2020
  2. PREDNISONE. [Concomitant]
     Active Substance: PREDNISONE
     Indication: PRODUCT USED FOR UNKNOWN INDICATION
  3. HUMIRA [Suspect]
     Active Substance: ADALIMUMAB
     Indication: COLITIS ULCERATIVE
     Route: 058
     Dates: start: 20190918, end: 2020

REACTIONS (8)
  - Influenza [Unknown]
  - Drug level decreased [Unknown]
  - Overweight [Unknown]
  - Colitis ulcerative [Recovered/Resolved]
  - Tongue ulceration [Not Recovered/Not Resolved]
  - Malaise [Unknown]
  - Colitis ulcerative [Unknown]
  - Haemorrhage [Unknown]

NARRATIVE: CASE EVENT DATE: 2019
